FAERS Safety Report 5143510-4 (Version None)
Quarter: 2006Q4

REPORT INFORMATION
  Report Type: 
  Country: None (occurrence: None)
  Receive Date: 20061103
  Receipt Date: 20061025
  Transmission Date: 20070319
  Serious: Yes (Other)
  Sender: FDA-Public Use
  Company Number: GB-GLAXOSMITHKLINE-B0445162A

PATIENT
  Age: 61 Year
  Sex: Female
  Weight: 77 kg

DRUGS (4)
  1. AVANDAMET [Suspect]
     Indication: DRUG USE FOR UNKNOWN INDICATION
     Route: 048
     Dates: start: 20060919, end: 20060926
  2. BEZALIP MONO [Concomitant]
     Route: 048
  3. FOLIC ACID [Concomitant]
     Route: 048
  4. GLICLAZIDE [Concomitant]
     Dosage: 80MG UNKNOWN
     Route: 048

REACTIONS (3)
  - BLISTER [None]
  - PRURITUS [None]
  - RASH [None]
